FAERS Safety Report 7421654-1 (Version None)
Quarter: 2011Q2

REPORT INFORMATION
  Report Type: 
  Country: None (occurrence: None)
  Receive Date: 20110418
  Receipt Date: 20110324
  Transmission Date: 20111010
  Serious: No
  Sender: FDA-Public Use
  Company Number: US-B.I. PHARMACEUTICALS,INC./RIDGEFIELD-2011-BP-05655BP

PATIENT
  Sex: Male

DRUGS (7)
  1. PRADAXA [Suspect]
     Indication: ATRIAL FIBRILLATION
     Dosage: 300 MG
     Route: 048
     Dates: start: 20101215
  2. UROCIT [Concomitant]
     Indication: NEPHROLITHIASIS
     Dosage: 60 MG
     Route: 048
  3. ZOLPIDEM [Concomitant]
     Indication: INSOMNIA
     Route: 048
  4. FISH OIL [Suspect]
     Indication: PROPHYLAXIS
     Dosage: 2000 MG
     Route: 048
  5. ATIVAN [Concomitant]
     Indication: ANXIETY
     Route: 048
  6. FLECAINIDE ACETATE [Concomitant]
     Indication: ATRIAL FIBRILLATION
     Dosage: 200 MG
     Route: 048
  7. TURMERIC [Concomitant]
     Indication: PROPHYLAXIS
     Route: 048

REACTIONS (6)
  - FEELING COLD [None]
  - RHEUMATOID ARTHRITIS [None]
  - PERIPHERAL COLDNESS [None]
  - HAEMATURIA [None]
  - ARTHRALGIA [None]
  - URINARY TRACT INFECTION [None]
